FAERS Safety Report 16611948 (Version 1)
Quarter: 2019Q3

REPORT INFORMATION
  Report Type: Spontaneous
  Country: US (occurrence: US)
  Receive Date: 20190722
  Receipt Date: 20190722
  Transmission Date: 20191004
  Serious: Yes (Other)
  Sender: FDA-Public Use
  Company Number: US-HQ SPECIALTY-US-2019INT000172

PATIENT
  Age: 56 Year
  Sex: Male

DRUGS (5)
  1. ETOPOSIDE. [Suspect]
     Active Substance: ETOPOSIDE
     Dosage: UNK, TWO ADDITIONAL CYCLES
  2. ETOPOSIDE. [Suspect]
     Active Substance: ETOPOSIDE
     Indication: SMALL CELL CARCINOMA
     Dosage: UNK, 2 CYCLES
  3. CISPLATIN. [Suspect]
     Active Substance: CISPLATIN
     Indication: SMALL CELL CARCINOMA
     Dosage: 149 MG, 2 CYCLES
     Route: 042
  4. ETOPOSIDE. [Suspect]
     Active Substance: ETOPOSIDE
     Dosage: UNK, TWO ADDITIONAL CYCLES
  5. CISPLATIN. [Suspect]
     Active Substance: CISPLATIN
     Dosage: UNK, TWO ADDITIONAL CYCLES
     Route: 042

REACTIONS (4)
  - Blindness [Not Recovered/Not Resolved]
  - Retinopathy [Recovered/Resolved]
  - Maculopathy [Unknown]
  - Retinal degeneration [Unknown]
